FAERS Safety Report 11891524 (Version 2)
Quarter: 2016Q1

REPORT INFORMATION
  Report Type: Report from Study
  Country: US (occurrence: US)
  Receive Date: 20160106
  Receipt Date: 20160114
  Transmission Date: 20160526
  Serious: No
  Sender: FDA-Public Use
  Company Number: PHEH2015US027435

PATIENT
  Sex: Male

DRUGS (1)
  1. ENTRESTO [Suspect]
     Active Substance: SACUBITRIL\VALSARTAN
     Indication: PRODUCT USED FOR UNKNOWN INDICATION
     Dosage: 97/103 MG, QD
     Route: 065

REACTIONS (4)
  - Nasal pruritus [Recovered/Resolved]
  - Ocular hyperaemia [Unknown]
  - Insomnia [Unknown]
  - Eye pruritus [Recovered/Resolved]
